FAERS Safety Report 11600118 (Version 1)
Quarter: 2015Q4

REPORT INFORMATION
  Report Type: Spontaneous
  Country: US (occurrence: US)
  Receive Date: 20151006
  Receipt Date: 20151006
  Transmission Date: 20160304
  Serious: No
  Sender: FDA-Public Use
  Company Number: US-AMGEN-USASP2015029269

PATIENT
  Age: 76 Year
  Sex: Female
  Weight: 66.45 kg

DRUGS (5)
  1. PROLIA [Suspect]
     Active Substance: DENOSUMAB
     Indication: OSTEOPOROSIS
     Dosage: 60 MG, UNK
     Route: 058
     Dates: start: 201410
  2. LANOXIN [Concomitant]
     Active Substance: DIGOXIN
     Dosage: .5 MG, UNK
     Route: 048
  3. PROPAFENONE. [Concomitant]
     Active Substance: PROPAFENONE
     Dosage: 22.5 UNK, UNK
     Route: 048
  4. PRENACID [Concomitant]
     Dosage: 3 MG, UNK
     Route: 048
  5. PINDOLOL. [Concomitant]
     Active Substance: PINDOLOL
     Dosage: 2.5 UNK, UNK
     Route: 048

REACTIONS (1)
  - Neuropathy peripheral [Not Recovered/Not Resolved]

NARRATIVE: CASE EVENT DATE: 201502
